FAERS Safety Report 17803160 (Version 1)
Quarter: 2020Q2

REPORT INFORMATION
  Report Type: Spontaneous
  Country: FR (occurrence: FR)
  Receive Date: 20200519
  Receipt Date: 20200519
  Transmission Date: 20200714
  Serious: Yes (Hospitalization)
  Sender: FDA-Public Use
  Company Number: NVSC2020FR136744

PATIENT
  Age: 21 Year
  Sex: Female

DRUGS (2)
  1. SURGAM [Suspect]
     Active Substance: TIAPROFENIC ACID
     Indication: NASOPHARYNGITIS
     Dosage: NON RENSEIGN?E
     Route: 048
     Dates: start: 20200224, end: 20200227
  2. AMOXICILLIN. [Suspect]
     Active Substance: AMOXICILLIN
     Indication: NASOPHARYNGITIS
     Dosage: UNK
     Route: 048
     Dates: start: 20200224, end: 20200302

REACTIONS (1)
  - Rash maculo-papular [Recovering/Resolving]

NARRATIVE: CASE EVENT DATE: 20200302
